FAERS Safety Report 8994842 (Version 2)
Quarter: 2013Q1

REPORT INFORMATION
  Report Type: Spontaneous
  Country: US (occurrence: US)
  Receive Date: 20130102
  Receipt Date: 20130204
  Transmission Date: 20140127
  Serious: No
  Sender: FDA-Public Use
  Company Number: US-AMGEN-USASP2012078189

PATIENT
  Age: 50 Year
  Sex: Female
  Weight: 100.23 kg

DRUGS (1)
  1. ENBREL [Suspect]
     Indication: RHEUMATOID ARTHRITIS
     Dosage: 50 MG, 0.5 ML WITH EACH INJECTION AND NOT 10. ML

REACTIONS (2)
  - Adverse reaction [Unknown]
  - Injection site erythema [Unknown]
